FAERS Safety Report 5931109-9 (Version None)
Quarter: 2008Q4

REPORT INFORMATION
  Report Type: 
  Country: None (occurrence: None)
  Receive Date: 20081027
  Receipt Date: 20081015
  Transmission Date: 20090506
  Serious: Yes (Other)
  Sender: FDA-Public Use
  Company Number: PHHY2008GB25232

PATIENT
  Age: 53 Year
  Sex: Male

DRUGS (3)
  1. ZOLEDRONIC ACID [Suspect]
     Dosage: 5 MG, UNK
     Route: 042
     Dates: start: 20080916
  2. IBUPROFEN TABLETS [Concomitant]
     Route: 048
  3. ACETAMINOPHEN [Concomitant]
     Route: 048

REACTIONS (4)
  - BODY TEMPERATURE INCREASED [None]
  - CHILLS [None]
  - MALAISE [None]
  - PAIN [None]
